FAERS Safety Report 21407637 (Version 3)
Quarter: 2023Q2

REPORT INFORMATION
  Report Type: Report from Study
  Country: FR (occurrence: FR)
  Receive Date: 20221004
  Receipt Date: 20230529
  Transmission Date: 20230722
  Serious: Yes (Other)
  Sender: FDA-Public Use
  Company Number: FR-GLAXOSMITHKLINE-FR2022GSK140981

PATIENT

DRUGS (20)
  1. ATEZOLIZUMAB [Suspect]
     Active Substance: ATEZOLIZUMAB
     Indication: Ovarian epithelial cancer
     Dosage: 1200 MG, CYC
     Route: 042
     Dates: start: 20200820, end: 20200820
  2. DOXORUBICIN [Suspect]
     Active Substance: DOXORUBICIN
     Indication: Ovarian epithelial cancer
     Dosage: 1200 MG, CYC
     Route: 042
     Dates: start: 20200820, end: 20200820
  3. NIRAPARIB [Suspect]
     Active Substance: NIRAPARIB
     Indication: Ovarian epithelial cancer
     Dosage: 1200 MG, CYC
     Route: 042
     Dates: start: 20200820, end: 20200820
  4. PLACEBO [Suspect]
     Active Substance: UNSPECIFIED INGREDIENT
     Indication: Ovarian epithelial cancer
     Dosage: 1200 MG, CYC
     Route: 042
     Dates: start: 20200820, end: 20200820
  5. ATEZOLIZUMAB [Suspect]
     Active Substance: ATEZOLIZUMAB
     Dosage: 1200 MG, CYC
     Route: 042
     Dates: start: 20220927, end: 20220927
  6. DOXORUBICIN [Suspect]
     Active Substance: DOXORUBICIN
     Dosage: 1200 MG, CYC
     Route: 042
     Dates: start: 20220927, end: 20220927
  7. NIRAPARIB [Suspect]
     Active Substance: NIRAPARIB
     Dosage: 1200 MG, CYC
     Route: 042
     Dates: start: 20220927, end: 20220927
  8. PLACEBO [Suspect]
     Active Substance: UNSPECIFIED INGREDIENT
     Dosage: 1200 MG, CYC
     Route: 042
     Dates: start: 20220927, end: 20220927
  9. ATEZOLIZUMAB [Suspect]
     Active Substance: ATEZOLIZUMAB
     Indication: Ovarian epithelial cancer
     Dosage: 55 MG
     Route: 042
     Dates: start: 20200820, end: 20210105
  10. DOXORUBICIN [Suspect]
     Active Substance: DOXORUBICIN
     Indication: Ovarian epithelial cancer
     Dosage: 55 MG
     Route: 042
     Dates: start: 20200820, end: 20210105
  11. NIRAPARIB [Suspect]
     Active Substance: NIRAPARIB
     Indication: Ovarian epithelial cancer
     Dosage: 55 MG
     Route: 042
     Dates: start: 20200820, end: 20210105
  12. PLACEBO [Suspect]
     Active Substance: UNSPECIFIED INGREDIENT
     Indication: Ovarian epithelial cancer
     Dosage: 55 MG
     Route: 042
     Dates: start: 20200820, end: 20210105
  13. CARBOPLATIN [Concomitant]
     Active Substance: CARBOPLATIN
     Indication: Ovarian epithelial cancer
     Dosage: 660 MG
     Route: 042
     Dates: start: 20200820, end: 20210105
  14. OXYCODONE [Concomitant]
     Active Substance: OXYCODONE
     Indication: Product used for unknown indication
     Dosage: 5 MG
     Route: 048
  15. OXYCODONE [Concomitant]
     Active Substance: OXYCODONE
     Dosage: 10 MG
     Route: 048
  16. TELMISARTAN [Concomitant]
     Active Substance: TELMISARTAN
     Indication: Product used for unknown indication
     Dosage: 40 MG
     Route: 048
  17. POLYETHYLENE GLYCOLS [Concomitant]
     Active Substance: POLYETHYLENE GLYCOLS
     Indication: Product used for unknown indication
     Dosage: UNK UNK, BID
     Route: 048
     Dates: start: 20220822
  18. TRIMEBUTINE MALEATE [Concomitant]
     Active Substance: TRIMEBUTINE MALEATE
     Indication: Product used for unknown indication
     Dosage: 100 MG
     Route: 048
     Dates: start: 20220822
  19. AUGMENTIN [Concomitant]
     Active Substance: AMOXICILLIN\CLAVULANATE POTASSIUM
     Indication: Product used for unknown indication
     Dosage: UNK, TID
     Route: 048
     Dates: start: 20220510
  20. LEVOTHYROXINE [Concomitant]
     Active Substance: LEVOTHYROXINE
     Indication: Product used for unknown indication
     Dosage: 37.5 MG, QID
     Route: 048
     Dates: start: 20220503

REACTIONS (1)
  - Lentigo maligna [Recovered/Resolved]

NARRATIVE: CASE EVENT DATE: 20220913
